FAERS Safety Report 7315025-6 (Version None)
Quarter: 2011Q1

REPORT INFORMATION
  Report Type: 
  Country: None (occurrence: None)
  Receive Date: 20110225
  Receipt Date: 20100412
  Transmission Date: 20110831
  Serious: No
  Sender: FDA-Public Use
  Company Number: US-MYLANLABS-2010S1004164

PATIENT
  Age: 47 Year
  Sex: Male

DRUGS (1)
  1. AMNESTEEM [Suspect]
     Indication: HIDRADENITIS
     Route: 048
     Dates: start: 20091201, end: 20100201

REACTIONS (3)
  - GASTROOESOPHAGEAL REFLUX DISEASE [None]
  - CHEST DISCOMFORT [None]
  - DRUG INEFFECTIVE [None]
